FAERS Safety Report 9454470 (Version 1)
Quarter: 2013Q3

REPORT INFORMATION
  Report Type: Report from Study
  Country: IT (occurrence: IT)
  Receive Date: 20130812
  Receipt Date: 20130812
  Transmission Date: 20140515
  Serious: Yes (Other)
  Sender: FDA-Public Use
  Company Number: IT-ROCHE-1255947

PATIENT
  Sex: 0

DRUGS (6)
  1. CAPECITABINE [Suspect]
     Indication: COLON CANCER METASTATIC
     Route: 065
  2. CAPECITABINE [Suspect]
     Indication: METASTASES TO LIVER
  3. PANITUMUMAB [Suspect]
     Indication: COLON CANCER METASTATIC
     Route: 042
  4. PANITUMUMAB [Suspect]
     Indication: METASTASES TO LIVER
  5. OXALIPLATIN [Suspect]
     Indication: COLON CANCER METASTATIC
     Route: 065
  6. OXALIPLATIN [Suspect]
     Indication: METASTASES TO LIVER

REACTIONS (10)
  - Skin toxicity [Unknown]
  - Nausea [Unknown]
  - Vomiting [Unknown]
  - Diarrhoea [Unknown]
  - Asthenia [Unknown]
  - Thrombocytopenia [Unknown]
  - Decreased appetite [Unknown]
  - Folliculitis [Unknown]
  - Neurotoxicity [Unknown]
  - Hypersensitivity [Unknown]
